FAERS Safety Report 15170410 (Version 1)
Quarter: 2018Q3

REPORT INFORMATION
  Report Type: Spontaneous
  Country: ES (occurrence: ES)
  Receive Date: 20180720
  Receipt Date: 20180720
  Transmission Date: 20181010
  Serious: Yes (Hospitalization)
  Sender: FDA-Public Use
  Company Number: ES-CONCORDIA PHARMACEUTICALS INC.-E2B_00014308

PATIENT
  Age: 79 Year
  Sex: Female

DRUGS (10)
  1. LOSART?N 50 MG COMPRIMIDO [Concomitant]
     Indication: ESSENTIAL HYPERTENSION
     Route: 048
     Dates: start: 20110920
  2. CALCIFEDIOL 0,266 MG SOLUCI?N/SUSPENSI?N ORAL AMPOLLA [Concomitant]
     Indication: ANXIETY
     Route: 048
     Dates: start: 20110920
  3. DIGOXIN. [Suspect]
     Active Substance: DIGOXIN
     Indication: ATRIAL FIBRILLATION
     Route: 048
     Dates: start: 20110920, end: 20180313
  4. PARACETAMOL (12A) [Concomitant]
     Active Substance: ACETAMINOPHEN
     Indication: OSTEOARTHRITIS
     Route: 048
     Dates: start: 20110920
  5. VILDAGLIPTINA + METFORMINA [Concomitant]
     Indication: DIABETES MELLITUS
     Dosage: ( 50/1000) MG
     Route: 048
     Dates: start: 20150223
  6. CARVEDILOL 25 MG COMPRIMIDO [Concomitant]
     Active Substance: CARVEDILOL
     Indication: ESSENTIAL HYPERTENSION
     Route: 048
     Dates: start: 20110919
  7. FERROGLICINA SULFATO (1549SU) [Concomitant]
     Indication: ABNORMAL LOSS OF WEIGHT
  8. FUROSEMIDA 40 MG COMPRIMIDO [Concomitant]
     Active Substance: FUROSEMIDE
     Indication: ESSENTIAL HYPERTENSION
     Route: 048
     Dates: start: 20110920
  9. SINTROM [Concomitant]
     Active Substance: ACENOCOUMAROL
     Indication: ARRHYTHMIA
     Route: 048
     Dates: start: 20110920
  10. OMEPRAZOL 40 MG C?PSULA [Concomitant]
     Indication: PHARYNGITIS
     Route: 048
     Dates: start: 20120912

REACTIONS (7)
  - Hypokalaemia [Recovered/Resolved]
  - Medication monitoring error [Recovered/Resolved]
  - Nausea [Recovered/Resolved]
  - Diarrhoea [Recovered/Resolved]
  - Toxicity to various agents [Recovered/Resolved]
  - Weight decreased [Recovered/Resolved]
  - Vomiting [Recovered/Resolved]

NARRATIVE: CASE EVENT DATE: 20180313
